FAERS Safety Report 7499297-3 (Version None)
Quarter: 2011Q2

REPORT INFORMATION
  Report Type: 
  Country: None (occurrence: None)
  Receive Date: 20110524
  Receipt Date: 20110201
  Transmission Date: 20111010
  Serious: No
  Sender: FDA-Public Use
  Company Number: A0911160A

PATIENT
  Sex: Female

DRUGS (2)
  1. ARZERRA [Suspect]
     Route: 042
     Dates: start: 20101101
  2. NO CONCURRENT MEDICATION [Concomitant]

REACTIONS (1)
  - RASH [None]
